FAERS Safety Report 4642067-1 (Version None)
Quarter: 2005Q2

REPORT INFORMATION
  Report Type: 
  Country: None (occurrence: None)
  Receive Date: 20050420
  Receipt Date: 20050404
  Transmission Date: 20051028
  Serious: Yes (Hospitalization)
  Sender: FDA-Public Use
  Company Number: GBS050417060

PATIENT
  Age: 46 Year
  Sex: Male

DRUGS (5)
  1. ZYPREXA [Suspect]
  2. SOLIAN (AMISULPRIDE) [Concomitant]
  3. MIRTAZAPINE [Concomitant]
  4. CITALOPRAM HYDROBROMIDE [Concomitant]
  5. ZOPICLONE (ZOPICLONE) [Concomitant]

REACTIONS (8)
  - BLOOD CREATINE PHOSPHOKINASE INCREASED [None]
  - BLOOD PRESSURE ABNORMAL [None]
  - EXTRAPYRAMIDAL DISORDER [None]
  - HYPERHIDROSIS [None]
  - MALAISE [None]
  - PARKINSONISM [None]
  - PYREXIA [None]
  - WEIGHT DECREASED [None]
